FAERS Safety Report 5838188-8 (Version None)
Quarter: 2008Q3

REPORT INFORMATION
  Report Type: 
  Country: None (occurrence: None)
  Receive Date: 20080808
  Receipt Date: 20080804
  Transmission Date: 20090109
  Serious: Yes (Disabling, Other)
  Sender: FDA-Public Use
  Company Number: JP-BAYER-200811749BYL

PATIENT
  Age: 68 Year
  Sex: Male
  Weight: 42 kg

DRUGS (9)
  1. NEXAVAR [Suspect]
     Indication: RENAL CELL CARCINOMA STAGE IV
     Dosage: UNIT DOSE: 200 MG
     Route: 048
     Dates: start: 20080617, end: 20080713
  2. OXINORM [Concomitant]
     Dosage: UNIT DOSE: 5 MG
     Route: 048
     Dates: start: 20080623
  3. BETAMETHASONE [Concomitant]
     Dosage: TOTAL DAILY DOSE: 1.0 MG  UNIT DOSE: 0.5 MG
     Route: 048
     Dates: start: 20080628
  4. ALTAT [Concomitant]
     Dosage: TOTAL DAILY DOSE: 150 MG  UNIT DOSE: 75 MG
     Route: 048
     Dates: start: 20080628
  5. NOVAMIN [Concomitant]
     Dosage: TOTAL DAILY DOSE: 15 MG  UNIT DOSE: 5 MG
     Route: 048
     Dates: start: 20080628
  6. HEAVY MAGNESIUM OXIDE [Concomitant]
     Dosage: TOTAL DAILY DOSE: 9 G
     Route: 048
     Dates: start: 20080628
  7. URSO 250 [Concomitant]
     Dosage: TOTAL DAILY DOSE: 300 MG  UNIT DOSE: 100 MG
     Route: 048
     Dates: start: 20080628
  8. ARGAMATE [Concomitant]
     Dosage: TOTAL DAILY DOSE: 75 G  UNIT DOSE: 25 G
     Route: 048
     Dates: start: 20080628
  9. FENTANYL TRANSDERMAL SYSTEM [Concomitant]

REACTIONS (2)
  - CEREBRAL INFARCTION [None]
  - DELIRIUM [None]
